FAERS Safety Report 6499190-9 (Version None)
Quarter: 2009Q4

REPORT INFORMATION
  Report Type: 
  Country: None (occurrence: None)
  Receive Date: 20091127
  Receipt Date: 20081017
  Transmission Date: 20100525
  Serious: Yes (Other)
  Sender: FDA-Public Use
  Company Number: WAES 0805USA00689

PATIENT
  Age: 80 Year
  Sex: Female
  Weight: 102.9665 kg

DRUGS (3)
  1. FOSAMAX [Suspect]
     Indication: OSTEOPOROSIS
     Dosage: 70 MG/WKY/PO
     Route: 048
     Dates: start: 20050101, end: 20070601
  2. FOSAMAX PLUS D [Suspect]
     Dosage: PO
     Route: 048
     Dates: start: 20050101
  3. ACTONEL [Concomitant]

REACTIONS (18)
  - ASTHMA [None]
  - BACK PAIN [None]
  - BLOOD CHOLESTEROL INCREASED [None]
  - BRONCHITIS [None]
  - COCCYDYNIA [None]
  - CONTUSION [None]
  - DENTAL CARIES [None]
  - DIARRHOEA INFECTIOUS [None]
  - FALL [None]
  - GINGIVAL SWELLING [None]
  - GOUT [None]
  - ORAL TORUS [None]
  - OSTEOARTHRITIS [None]
  - OSTEONECROSIS [None]
  - PAIN IN EXTREMITY [None]
  - POLYMYALGIA RHEUMATICA [None]
  - ROTATOR CUFF SYNDROME [None]
  - TOOTH FRACTURE [None]
